FAERS Safety Report 21731821 (Version 2)
Quarter: 2022Q4

REPORT INFORMATION
  Report Type: Spontaneous
  Country: IR (occurrence: IR)
  Receive Date: 20221215
  Receipt Date: 20221219
  Transmission Date: 20230113
  Serious: Yes (Death, Hospitalization)
  Sender: FDA-Public Use
  Company Number: IR-002147023-NVSC2022IR288426

PATIENT
  Age: 20 Year
  Sex: Male

DRUGS (2)
  1. SOMATROPIN [Suspect]
     Active Substance: SOMATROPIN
     Indication: Medical anabolic therapy
     Dosage: UNK (SINCE LAST TWO YEARS)
     Route: 065
  2. SOMATROPIN [Suspect]
     Active Substance: SOMATROPIN
     Dosage: 30 INJECTIONS EACH OF 10 MG/ 1.5 ML ALL AT ONCE
     Route: 058

REACTIONS (12)
  - Cardio-respiratory arrest [Fatal]
  - Intentional overdose [Fatal]
  - Rhabdomyolysis [Unknown]
  - Hallucination [Unknown]
  - Body temperature increased [Unknown]
  - Depressed level of consciousness [Unknown]
  - Pneumonia aspiration [Unknown]
  - Oxygen saturation decreased [Unknown]
  - Hypertensive crisis [Unknown]
  - Upper airway obstruction [Unknown]
  - Pulmonary embolism [Unknown]
  - General physical health deterioration [Unknown]
